FAERS Safety Report 16678134 (Version 1)
Quarter: 2019Q3

REPORT INFORMATION
  Report Type: Spontaneous
  Country: US (occurrence: US)
  Receive Date: 20190807
  Receipt Date: 20190807
  Transmission Date: 20191004
  Serious: No
  Sender: FDA-Public Use
  Company Number: US-PFIZER INC-2019332583

PATIENT
  Age: 66 Year
  Sex: Male
  Weight: 117.9 kg

DRUGS (4)
  1. ADVIL PM [Suspect]
     Active Substance: DIPHENHYDRAMINE CITRATE\IBUPROFEN
     Indication: HEADACHE
     Dosage: UNK, [1 TO 2 CAPLETS]
     Dates: start: 20190728
  2. ASMANEX [Concomitant]
     Active Substance: MOMETASONE FUROATE
     Indication: PNEUMONITIS
     Dosage: 200 MG, [200 MG PER ACTUATION]
  3. CARVEDILOL. [Concomitant]
     Active Substance: CARVEDILOL
     Indication: BLOOD PRESSURE ABNORMAL
     Dosage: 25 MG, 2X/DAY
     Route: 048
     Dates: start: 2016
  4. AMOXICILLIN. [Concomitant]
     Active Substance: AMOXICILLIN
     Indication: PNEUMONITIS
     Dosage: 1 DF, 2X/DAY (EVERY 12 HOURS)
     Route: 048

REACTIONS (1)
  - Pain [Unknown]
